FAERS Safety Report 5994973-3 (Version None)
Quarter: 2008Q4

REPORT INFORMATION
  Report Type: 
  Country: None (occurrence: None)
  Receive Date: 20081209
  Receipt Date: 20080827
  Transmission Date: 20090506
  Serious: No
  Sender: FDA-Public Use
  Company Number: 002#2#2008-00650

PATIENT
  Age: 90 Year
  Sex: Male
  Weight: 83.9154 kg

DRUGS (5)
  1. NEUPRO [Suspect]
     Indication: PARKINSON'S DISEASE
     Dosage: 2MG/24H,1 IN 1 D,TRANSDERMAL
     Route: 062
     Dates: start: 20080201, end: 20080501
  2. SINEMET [Concomitant]
  3. AZILECT [Concomitant]
  4. DIOVAN [Concomitant]
  5. FLUCAINIDE [Concomitant]

REACTIONS (1)
  - DRUG INEFFECTIVE [None]
